FAERS Safety Report 15538856 (Version 4)
Quarter: 2020Q1

REPORT INFORMATION
  Report Type: Spontaneous
  Country: JP (occurrence: JP)
  Receive Date: 20181022
  Receipt Date: 20200304
  Transmission Date: 20200409
  Serious: Yes (Other)
  Sender: FDA-Public Use
  Company Number: JP-GLAXOSMITHKLINE-JP2018JPN180268

PATIENT

DRUGS (7)
  1. ACUATIM CREAM [Concomitant]
     Indication: ACNE
     Dosage: UNK
     Dates: start: 20180605, end: 20180702
  2. RINDERON [Concomitant]
     Indication: ACNE
     Dosage: ADEQUATE AMOUNT, QD
     Dates: start: 20180703, end: 20180713
  3. BIOFERMIN-R TABLETS (JAPAN) [Concomitant]
     Indication: ACNE
     Dosage: 1 DF, TID
     Dates: start: 20180703, end: 20180713
  4. DUAC GEL [Suspect]
     Active Substance: BENZOYL PEROXIDE\CLINDAMYCIN PHOSPHATE
     Indication: ACNE
     Dosage: ADEQUATE AMOUNT, QD
     Route: 050
     Dates: start: 20180703, end: 20180713
  5. RINDERON [Concomitant]
     Dosage: ADEQUATE AMOUNT, BID
     Dates: start: 20180714, end: 20180717
  6. CEFCAPENE PIVOXIL HYDROCHLORIDE HYDRATE [Concomitant]
     Active Substance: CEFCAPENE PIVOXIL HYDROCHLORIDE HYDRATE
     Dosage: 100 MG, TID
     Dates: start: 20180717, end: 20180720
  7. VIBRAMYCIN [Concomitant]
     Active Substance: DOXYCYCLINE
     Indication: ACNE
     Dosage: UNK
     Dates: start: 20180605, end: 20180703

REACTIONS (9)
  - Rash papular [Unknown]
  - Skin exfoliation [Not Recovered/Not Resolved]
  - Dermatitis contact [Recovering/Resolving]
  - Erythema [Recovering/Resolving]
  - Infection [Unknown]
  - Pyrexia [Recovered/Resolved]
  - Swelling face [Recovering/Resolving]
  - Face oedema [Recovering/Resolving]
  - Scab [Unknown]

NARRATIVE: CASE EVENT DATE: 20180713
